FAERS Safety Report 15507114 (Version 2)
Quarter: 2019Q1

REPORT INFORMATION
  Report Type: Spontaneous
  Country: GB (occurrence: GB)
  Receive Date: 20181016
  Receipt Date: 20190110
  Transmission Date: 20190417
  Serious: Yes (Hospitalization, Disabling, Other)
  Sender: FDA-Public Use
  Company Number: GB-BAYER-2018-173812

PATIENT
  Age: 48 Year
  Sex: Male
  Weight: 89.7 kg

DRUGS (11)
  1. GABAPENTIN. [Concomitant]
     Active Substance: GABAPENTIN
  2. ATORVASTATIN [Suspect]
     Active Substance: ATORVASTATIN
     Dosage: 20 MG, QD
     Route: 048
     Dates: start: 20180221, end: 20180224
  3. COCODAMOL [Concomitant]
     Active Substance: ACETAMINOPHEN\CODEINE PHOSPHATE
  4. GABAPENTIN. [Concomitant]
     Active Substance: GABAPENTIN
     Dosage: 200 MG, UNK
  5. CLOPIDOGREL [Suspect]
     Active Substance: CLOPIDOGREL BISULFATE
     Dosage: 75 MG, QD
     Route: 048
     Dates: start: 20180221, end: 20180224
  6. CETIRIZIN [Concomitant]
     Active Substance: CETIRIZINE HYDROCHLORIDE
     Dosage: 10 MG, UNK
  7. RIVAROXABAN [Concomitant]
     Active Substance: RIVAROXABAN
  8. GADOVIST [Suspect]
     Active Substance: GADOBUTROL
     Indication: NUCLEAR MAGNETIC RESONANCE IMAGING
     Dosage: 14 ML, ONCE
     Dates: start: 20180202, end: 20180202
  9. CETIRIZIN [Concomitant]
     Active Substance: CETIRIZINE HYDROCHLORIDE
     Dosage: 20 MG, UNK
  10. CITALOPRAM [Concomitant]
     Active Substance: CITALOPRAM HYDROBROMIDE
  11. RANITIDINE. [Concomitant]
     Active Substance: RANITIDINE

REACTIONS (32)
  - Facial paralysis [None]
  - Paraesthesia oral [None]
  - Memory impairment [None]
  - Asthenia [None]
  - Swelling face [None]
  - Contrast media toxicity [None]
  - Fatigue [Not Recovered/Not Resolved]
  - Cognitive disorder [None]
  - Dry eye [None]
  - Fine motor skill dysfunction [None]
  - Hemiparesis [None]
  - Skin discolouration [None]
  - Cerebral disorder [None]
  - Dysarthria [None]
  - Tinnitus [None]
  - Balance disorder [None]
  - Visual impairment [None]
  - Anaphylactic shock [Not Recovered/Not Resolved]
  - Hypoaesthesia oral [None]
  - Eye swelling [None]
  - Pruritus [Not Recovered/Not Resolved]
  - Urticaria [Recovered/Resolved]
  - Rash [Recovered/Resolved]
  - Headache [Not Recovered/Not Resolved]
  - Loss of personal independence in daily activities [Not Recovered/Not Resolved]
  - Musculoskeletal stiffness [Not Recovered/Not Resolved]
  - Feeling cold [None]
  - Chest discomfort [None]
  - Dizziness [None]
  - Swelling face [None]
  - Arthralgia [Not Recovered/Not Resolved]
  - Temperature regulation disorder [None]

NARRATIVE: CASE EVENT DATE: 20180220
